FAERS Safety Report 25345783 (Version 2)
Quarter: 2025Q4

REPORT INFORMATION
  Report Type: Spontaneous
  Country: EU (occurrence: EU)
  Receive Date: 20250522
  Receipt Date: 20251027
  Transmission Date: 20260117
  Serious: Yes (Death, Hospitalization, Other)
  Sender: HIKMA
  Company Number: None

PATIENT
  Age: 1 Year
  Sex: Female
  Weight: 10 kg

DRUGS (2)
  1. CYTARABINE [Suspect]
     Active Substance: CYTARABINE
     Indication: Acute myeloid leukaemia
     Dosage: 89 MILLIGRAM
     Route: 042
     Dates: start: 20250328, end: 20250403
  2. DOXORUBICIN [Suspect]
     Active Substance: DOXORUBICIN
     Indication: Acute myeloid leukaemia
     Dosage: 22 MG IN 60 MIN. (FOR A TOTAL OF 3 DAYS)
     Route: 042
     Dates: start: 20250328, end: 20250330

REACTIONS (5)
  - Pancytopenia [Fatal]
  - Hypernatraemia [Fatal]
  - Electrolyte imbalance [Fatal]
  - Septic shock [Fatal]
  - Pyrexia [Unknown]

NARRATIVE: CASE EVENT DATE: 20250330
